FAERS Safety Report 9508253 (Version 1)
Quarter: 2013Q3

REPORT INFORMATION
  Report Type: Spontaneous
  Country: US (occurrence: US)
  Receive Date: 20130909
  Receipt Date: 20130909
  Transmission Date: 20140515
  Serious: No
  Sender: FDA-Public Use
  Company Number: US-PFIZER INC-2013255572

PATIENT
  Sex: Male

DRUGS (2)
  1. MOTRIN [Suspect]
     Indication: TEETHING
     Dosage: UNK
     Route: 065
  2. TYLENOL [Suspect]
     Indication: TEETHING
     Dosage: UNK
     Route: 048

REACTIONS (1)
  - Dependence [Unknown]
